FAERS Safety Report 4680958-6 (Version None)
Quarter: 2005Q2

REPORT INFORMATION
  Report Type: 
  Country: None (occurrence: None)
  Receive Date: 20050601
  Receipt Date: 20050519
  Transmission Date: 20051028
  Serious: Yes (Hospitalization, Other)
  Sender: FDA-Public Use
  Company Number: 2005077154

PATIENT
  Age: 69 Year
  Sex: Female
  Weight: 97.5234 kg

DRUGS (3)
  1. BEXTRA [Suspect]
     Indication: RHEUMATOID ARTHRITIS
     Dosage: 20 MG (20 MG,1 IN 1 D),ORAL
     Route: 048
     Dates: end: 20050101
  2. ENALAPRIL MALEATE [Concomitant]
  3. DOXAZOSIN (DOXAZOSIN) [Concomitant]

REACTIONS (2)
  - ATRIAL FIBRILLATION [None]
  - SURGERY [None]
